FAERS Safety Report 12284804 (Version 1)
Quarter: 2016Q2

REPORT INFORMATION
  Report Type: Spontaneous
  Country: US (occurrence: US)
  Receive Date: 20160420
  Receipt Date: 20160420
  Transmission Date: 20160815
  Serious: No
  Sender: FDA-Public Use
  Company Number: US-TEVA-636642USA

PATIENT
  Sex: Female
  Weight: 58.11 kg

DRUGS (2)
  1. ZOLPIDEM [Suspect]
     Active Substance: ZOLPIDEM\ZOLPIDEM TARTRATE
     Indication: INSOMNIA
     Dates: end: 20160210
  2. ZOLPIDEM [Suspect]
     Active Substance: ZOLPIDEM\ZOLPIDEM TARTRATE
     Indication: SLEEP DISORDER

REACTIONS (5)
  - Migraine [Unknown]
  - Drug effect decreased [Unknown]
  - Heart rate increased [Unknown]
  - Drug ineffective [Unknown]
  - Product physical issue [Unknown]
